FAERS Safety Report 5881233-4 (Version None)
Quarter: 2008Q3

REPORT INFORMATION
  Report Type: 
  Country: None (occurrence: None)
  Receive Date: 20080912
  Receipt Date: 20080624
  Transmission Date: 20090109
  Serious: No
  Sender: FDA-Public Use
  Company Number: US-ABBOTT-08P-163-0459467-00

PATIENT
  Sex: Female
  Weight: 81.72 kg

DRUGS (3)
  1. HUMIRA [Suspect]
     Indication: PSORIATIC ARTHROPATHY
     Route: 058
     Dates: start: 20080617
  2. TOPICAL CREAM AND OINTMENTS [Concomitant]
     Indication: PSORIASIS
     Route: 061
     Dates: start: 20080601
  3. MELOXICAM [Concomitant]
     Indication: PSORIATIC ARTHROPATHY
     Route: 048
     Dates: start: 20070101, end: 20080624

REACTIONS (2)
  - ACCIDENTAL EXPOSURE [None]
  - DRUG ADMINISTERED AT INAPPROPRIATE SITE [None]
